FAERS Safety Report 12523021 (Version 1)
Quarter: 2016Q3

REPORT INFORMATION
  Report Type: Report from Study
  Country: IN (occurrence: IN)
  Receive Date: 20160701
  Receipt Date: 20160701
  Transmission Date: 20161109
  Serious: Yes (Hospitalization)
  Sender: FDA-Public Use
  Company Number: IN-009507513-1606IND011846

PATIENT
  Age: 44 Year
  Sex: Female

DRUGS (1)
  1. SITAGLIPTIN PHOSPHATE (+) METFORMIN HYDROCHLORIDE [Suspect]
     Active Substance: METFORMIN HYDROCHLORIDE\SITAGLIPTIN PHOSPHATE
     Indication: DIABETES MELLITUS
     Dosage: 1 DOSE, QD, STRENGTH 50/1000 (UNIT NOT PROVIDED)
     Route: 048

REACTIONS (2)
  - Hypertension [Unknown]
  - Chest pain [Unknown]
